FAERS Safety Report 24637235 (Version 1)
Quarter: 2024Q4

REPORT INFORMATION
  Report Type: Spontaneous
  Country: CN (occurrence: CN)
  Receive Date: 20241119
  Receipt Date: 20241119
  Transmission Date: 20250115
  Serious: Yes (Hospitalization, Other)
  Sender: PFIZER
  Company Number: CN-PFIZER INC-PV202400147846

PATIENT
  Age: 5 Year
  Sex: Male

DRUGS (11)
  1. CYTARABINE [Suspect]
     Active Substance: CYTARABINE
     Indication: Acute leukaemia
     Dosage: 0.035 G, 1X/DAY
     Route: 037
     Dates: start: 20241106, end: 20241106
  2. PEGASPARGASE [Suspect]
     Active Substance: PEGASPARGASE
     Indication: Acute leukaemia
     Dosage: 1250 IU, 1X/DAY
     Route: 030
     Dates: start: 20241106, end: 20241106
  3. METHOTREXATE [Suspect]
     Active Substance: METHOTREXATE
     Indication: Acute leukaemia
     Dosage: 12.5 MG, 1X/DAY
     Route: 037
     Dates: start: 20241106, end: 20241106
  4. DAUNORUBICIN HYDROCHLORIDE [Suspect]
     Active Substance: DAUNORUBICIN HYDROCHLORIDE
     Indication: Acute leukaemia
     Dosage: 15.6 MG, 1X/DAY
     Route: 041
     Dates: start: 20241105, end: 20241105
  5. VINCRISTINE SULFATE [Suspect]
     Active Substance: VINCRISTINE SULFATE
     Indication: Acute leukaemia
     Dosage: 0.93 MG, 1X/DAY
     Route: 041
     Dates: start: 20241105, end: 20241105
  6. DEXAMETHASONE SODIUM PHOSPHATE [Concomitant]
     Active Substance: DEXAMETHASONE SODIUM PHOSPHATE
     Indication: Acute leukaemia
     Dosage: 0.5 ML, 1X/DAY (FOR CYTARABINE)
     Route: 037
     Dates: start: 20241106, end: 20241106
  7. DEXAMETHASONE SODIUM PHOSPHATE [Concomitant]
     Active Substance: DEXAMETHASONE SODIUM PHOSPHATE
     Dosage: 0.5 ML, 1X/DAY (FOR METHOTREXATE)
     Route: 037
     Dates: start: 20241106, end: 20241106
  8. SODIUM CHLORIDE [Concomitant]
     Active Substance: SODIUM CHLORIDE
     Indication: Vehicle solution use
     Dosage: 100 ML, 1X/DAY (FOR DAUNORUBICIN HYDROCHLORIDE)
     Route: 041
     Dates: start: 20241105, end: 20241105
  9. SODIUM CHLORIDE [Concomitant]
     Active Substance: SODIUM CHLORIDE
     Dosage: 10 ML, 1X/DAY (FOR VINCRISTINE SULFATE)
     Route: 041
     Dates: start: 20241105, end: 20241105
  10. SODIUM CHLORIDE [Concomitant]
     Active Substance: SODIUM CHLORIDE
     Dosage: 1 ML, 1X/DAY (FOR METHOTREXATE)
     Route: 037
     Dates: start: 20241106, end: 20241106
  11. SODIUM CHLORIDE [Concomitant]
     Active Substance: SODIUM CHLORIDE
     Dosage: UNK UNK, 1X/DAY (FOR CYTARABINE)
     Route: 037
     Dates: start: 20241106, end: 20241106

REACTIONS (7)
  - Myelosuppression [Recovering/Resolving]
  - Pallor [Recovering/Resolving]
  - Dizziness [Recovering/Resolving]
  - Asthenia [Recovering/Resolving]
  - Palpitations [Recovering/Resolving]
  - Dyspnoea [Recovering/Resolving]
  - Mental disorder [Unknown]

NARRATIVE: CASE EVENT DATE: 20241109
